FAERS Safety Report 8669576 (Version 2)
Quarter: 2013Q4

REPORT INFORMATION
  Report Type: Spontaneous
  Country: US (occurrence: US)
  Receive Date: 20120718
  Receipt Date: 20131101
  Transmission Date: 20140711
  Serious: No
  Sender: FDA-Public Use
  Company Number: US-MERCK-2012SP036706

PATIENT
  Sex: 0

DRUGS (1)
  1. SAPHRIS [Suspect]
     Indication: PRODUCT USED FOR UNKNOWN INDICATION
     Dosage: 5 - 20 MG

REACTIONS (4)
  - Somnambulism [Unknown]
  - Binge eating [Unknown]
  - Sedation [Unknown]
  - Psychomotor hyperactivity [Unknown]
